FAERS Safety Report 9572925 (Version 2)
Quarter: 2014Q1

REPORT INFORMATION
  Report Type: Spontaneous
  Country: US (occurrence: US)
  Receive Date: 20131001
  Receipt Date: 20140303
  Transmission Date: 20141002
  Serious: No
  Sender: FDA-Public Use
  Company Number: US-BIOGENIDEC-2013BI068555

PATIENT
  Age: 70 Year
  Sex: Male

DRUGS (14)
  1. TECFIDERA [Suspect]
     Indication: MULTIPLE SCLEROSIS
     Route: 048
     Dates: start: 20130615
  2. TECFIDERA [Suspect]
     Indication: MULTIPLE SCLEROSIS
     Route: 048
     Dates: start: 20130711
  3. CIALIS [Concomitant]
  4. DIAZEPAM [Concomitant]
  5. AMINOGUANIDINE H CARBONATE (NOS) [Concomitant]
  6. AMITIZA [Concomitant]
  7. BACLOFEN [Concomitant]
  8. CLONAZEPAM [Concomitant]
  9. IBUPROFEN [Concomitant]
  10. LEVOTHYROXINE SODIUM [Concomitant]
  11. LIPITOR [Concomitant]
  12. LISINOPRIL [Concomitant]
  13. TERAZOSIN HCL [Concomitant]
  14. TIZANIDINE HCL [Concomitant]

REACTIONS (2)
  - Headache [Unknown]
  - Flushing [Unknown]
